FAERS Safety Report 16178093 (Version 1)
Quarter: 2019Q2

REPORT INFORMATION
  Report Type: Spontaneous
  Country: US (occurrence: US)
  Receive Date: 20190306
  Receipt Date: 20190306
  Transmission Date: 20190711
  Serious: Yes (Hospitalization)
  Sender: FDA-Public Use
  Company Number: None

PATIENT
  Age: 46 Year
  Sex: Female
  Weight: 89.8 kg

DRUGS (3)
  1. LENALIDOMIDE [Suspect]
     Active Substance: LENALIDOMIDE
     Dates: end: 20180419
  2. VELCADE [Suspect]
     Active Substance: BORTEZOMIB
     Dates: end: 20180416
  3. DEXAMETHASONE. [Suspect]
     Active Substance: DEXAMETHASONE
     Dates: end: 20180417

REACTIONS (3)
  - Neutrophil count decreased [None]
  - Therapy cessation [None]
  - White blood cell count decreased [None]

NARRATIVE: CASE EVENT DATE: 20180420
